FAERS Safety Report 8240939-2 (Version None)
Quarter: 2012Q1

REPORT INFORMATION
  Report Type: 
  Country: None (occurrence: None)
  Receive Date: 20120328
  Receipt Date: 20120319
  Transmission Date: 20120608
  Serious: Yes (Death, Life-Threatening, Hospitalization, Other)
  Sender: FDA-Public Use
  Company Number: PT-SANOFI-AVENTIS-200911782GDDC

PATIENT
  Age: 70 Year
  Sex: Male
  Weight: 89 kg

DRUGS (5)
  1. PREDNISOLONE [Suspect]
     Dosage: DOSE UNIT: 5 MG
     Route: 048
     Dates: start: 20090211, end: 20090219
  2. IRON [Concomitant]
     Dosage: DOSE AS USED: UNK
     Dates: start: 20090114
  3. DOCETAXEL [Suspect]
     Dosage: DOSE UNIT: 75 MG/M**2
     Route: 042
     Dates: start: 20090211, end: 20090211
  4. CAPTOPRIL [Concomitant]
     Dates: start: 20090206
  5. AFLIBERCEPT [Suspect]
     Dosage: DOSE UNIT: 6 MG/KG
     Route: 042
     Dates: start: 20090211, end: 20090211

REACTIONS (5)
  - PNEUMONIA BACTERIAL [None]
  - HYDRONEPHROSIS [None]
  - PYELONEPHRITIS ACUTE [None]
  - SEPTIC SHOCK [None]
  - PNEUMONIA STAPHYLOCOCCAL [None]
